FAERS Safety Report 19895850 (Version 2)
Quarter: 2022Q2

REPORT INFORMATION
  Report Type: Spontaneous
  Country: US (occurrence: US)
  Receive Date: 20210929
  Receipt Date: 20220531
  Transmission Date: 20220721
  Serious: No
  Sender: FDA-Public Use
  Company Number: US-PFIZER INC-202101135657

PATIENT
  Age: 87 Year
  Sex: Female

DRUGS (3)
  1. PREMARIN [Suspect]
     Active Substance: ESTROGENS, CONJUGATED
     Dosage: 0.5 G, 2X/WEEK
     Route: 067
  2. PREMARIN [Suspect]
     Active Substance: ESTROGENS, CONJUGATED
     Dosage: 0.025 G ON THE VULVA DAILY
  3. XARELTO [Concomitant]
     Active Substance: RIVAROXABAN

REACTIONS (4)
  - Malaise [Unknown]
  - Sleep disorder [Unknown]
  - Off label use [Unknown]
  - Off label use [Unknown]
